FAERS Safety Report 9494893 (Version 1)
Quarter: 2013Q3

REPORT INFORMATION
  Report Type: Spontaneous
  Country: FR (occurrence: FR)
  Receive Date: 20130903
  Receipt Date: 20130903
  Transmission Date: 20140515
  Serious: Yes (Life-Threatening, Hospitalization, Other)
  Sender: FDA-Public Use
  Company Number: FR-PFIZER INC-2013250309

PATIENT
  Age: 58 Year
  Sex: Female

DRUGS (13)
  1. DOXORUBICIN HCL [Suspect]
     Dosage: 5TH COURSE
     Route: 042
     Dates: end: 20130104
  2. VINCRISTINE SULFATE [Suspect]
     Dosage: 5TH COURSE
     Route: 042
     Dates: end: 20130104
  3. CYCLOPHOSPHAMIDE [Suspect]
     Dosage: 5TH COURSE
     Route: 042
     Dates: end: 20130104
  4. BACTRIM [Suspect]
     Indication: LUNG DISORDER
     Dosage: UNK
     Route: 048
     Dates: start: 20130206, end: 20130216
  5. INEXIUM [Suspect]
     Dosage: UNK
     Route: 048
     Dates: start: 20130206, end: 20130220
  6. RITUXIMAB [Suspect]
     Indication: LYMPHOMA
     Dosage: 5TH COURSE
     Route: 042
     Dates: end: 20130104
  7. PARACETAMOL [Concomitant]
     Dosage: UNK
     Dates: start: 20130206
  8. LEDERFOLIN [Concomitant]
     Dosage: UNK
     Dates: start: 20130206
  9. ACUPAN [Concomitant]
     Dosage: UNK
     Dates: start: 20130206
  10. GAVISCON [Concomitant]
     Indication: ABDOMINAL PAIN UPPER
     Dosage: UNK
     Dates: start: 20130212
  11. CORTANCYL [Concomitant]
     Dosage: UNK
     Dates: start: 20130213
  12. COTRIMOXAZOLE [Concomitant]
     Dosage: UNK
     Dates: start: 20130206
  13. SOLU-MEDROL [Concomitant]
     Dosage: UNK
     Dates: start: 20130206

REACTIONS (5)
  - Neutropenia [Unknown]
  - Renal failure [Unknown]
  - Lung disorder [Unknown]
  - Abdominal pain upper [Unknown]
  - Pyrexia [Unknown]
